FAERS Safety Report 5329050-8 (Version None)
Quarter: 2007Q2

REPORT INFORMATION
  Report Type: 
  Country: None (occurrence: None)
  Receive Date: 20070518
  Receipt Date: 20070508
  Transmission Date: 20071010
  Serious: Yes (Life-Threatening, Hospitalization, Disabling, Other)
  Sender: FDA-Public Use
  Company Number: CA-PFIZER INC-2006115126

PATIENT
  Sex: Male
  Weight: 73.3 kg

DRUGS (9)
  1. SU-011,248 [Suspect]
     Indication: RENAL CELL CARCINOMA STAGE UNSPECIFIED
     Route: 048
     Dates: start: 20060526, end: 20060913
  2. MS CONTIN [Concomitant]
     Route: 048
  3. OXYCODONE HCL [Concomitant]
     Route: 048
     Dates: start: 20041001
  4. TYLENOL [Concomitant]
     Route: 048
     Dates: start: 20041001
  5. AMITRIPTYLINE HCL [Concomitant]
     Route: 048
     Dates: start: 20060401
  6. HERBAL PREPARATION [Concomitant]
     Route: 048
     Dates: start: 20060301
  7. VITAMIN B-12 [Concomitant]
     Route: 048
     Dates: start: 20060301
  8. FENTANYL [Concomitant]
     Dates: start: 20060301
  9. PREVACID [Concomitant]
     Route: 048
     Dates: start: 20060801

REACTIONS (4)
  - EMPYEMA [None]
  - INADEQUATE ANALGESIA [None]
  - METASTATIC PAIN [None]
  - PNEUMONIA [None]
